FAERS Safety Report 5551823-7 (Version None)
Quarter: 2007Q4

REPORT INFORMATION
  Report Type: 
  Country: None (occurrence: None)
  Receive Date: 20071212
  Receipt Date: 20071205
  Transmission Date: 20080405
  Serious: Yes (Other)
  Sender: FDA-Public Use
  Company Number: US-BOEHRINGER INGELHEIM PHARMACEUTICALS, INC.-2007-BP-21228BP

PATIENT
  Sex: Male

DRUGS (9)
  1. MIRAPEX [Suspect]
     Indication: PARKINSON'S DISEASE
     Route: 048
     Dates: start: 20031101, end: 20050101
  2. MIRAPEX [Suspect]
     Route: 048
     Dates: start: 20070601
  3. MIRAPEX [Suspect]
     Dates: start: 20060701, end: 20071101
  4. LODOSYN [Concomitant]
     Indication: PARKINSON'S DISEASE
  5. CARBIDOPA ER [Concomitant]
     Indication: PARKINSON'S DISEASE
  6. PARCOPA [Concomitant]
     Indication: PARKINSON'S DISEASE
  7. AMANTADINE HCL [Concomitant]
     Indication: PARKINSON'S DISEASE
  8. AZILECT [Concomitant]
  9. LORAZEPAM [Concomitant]

REACTIONS (8)
  - ECONOMIC PROBLEM [None]
  - FALL [None]
  - GAMBLING [None]
  - MUSCULOSKELETAL STIFFNESS [None]
  - ON AND OFF PHENOMENON [None]
  - PAIN [None]
  - STOMACH DISCOMFORT [None]
  - SUICIDE ATTEMPT [None]
